FAERS Safety Report 6005338-2 (Version None)
Quarter: 2008Q4

REPORT INFORMATION
  Report Type: 
  Country: None (occurrence: None)
  Receive Date: 20081215
  Receipt Date: 20081205
  Transmission Date: 20090506
  Serious: Yes (Other)
  Sender: FDA-Public Use
  Company Number: 2008SP024849

PATIENT
  Age: 48 Year
  Sex: Male

DRUGS (3)
  1. PEG-INTRON [Suspect]
     Indication: HEPATITIS C
     Dosage: 0.5 ML, SC; 0.35 ML, SC
     Route: 058
     Dates: start: 20080101
  2. PEG-INTRON [Suspect]
     Indication: HEPATITIS C
     Dosage: 0.5 ML, SC; 0.35 ML, SC
     Route: 058
     Dates: start: 20081107
  3. RIBAVIRIN [Suspect]
     Indication: HEPATITIS C
     Dosage: PO
     Route: 048
     Dates: start: 20081107

REACTIONS (5)
  - BACK PAIN [None]
  - BLOOD TEST ABNORMAL [None]
  - DEHYDRATION [None]
  - HEADACHE [None]
  - NAUSEA [None]
